FAERS Safety Report 4827032-3 (Version None)
Quarter: 2005Q4

REPORT INFORMATION
  Report Type: 
  Country: None (occurrence: None)
  Receive Date: 20051014
  Receipt Date: 20050617
  Transmission Date: 20060501
  Serious: No
  Sender: FDA-Public Use
  Company Number: 2005SP000652

PATIENT
  Age: 42 Year
  Sex: Female
  Weight: 58.9676 kg

DRUGS (6)
  1. LUNESTA [Suspect]
     Indication: INSOMNIA
     Dosage: 2 MG; ORAL; 3 MG; ORAL
     Route: 048
     Dates: start: 20050414, end: 20050101
  2. LUNESTA [Suspect]
     Indication: INSOMNIA
     Dosage: 2 MG; ORAL; 3 MG; ORAL
     Route: 048
     Dates: start: 20050101
  3. CALCIUM GLUCONATE [Concomitant]
  4. MAGNESIUM [Concomitant]
  5. ATIVAN [Concomitant]
  6. TENORMIN [Concomitant]

REACTIONS (2)
  - DYSGEUSIA [None]
  - INITIAL INSOMNIA [None]
